FAERS Safety Report 17745427 (Version 1)
Quarter: 2020Q2

REPORT INFORMATION
  Report Type: Spontaneous
  Country: US (occurrence: US)
  Receive Date: 20200504
  Receipt Date: 20200504
  Transmission Date: 20200714
  Serious: Yes (Hospitalization)
  Sender: FDA-Public Use
  Company Number: None

PATIENT
  Age: 56 Year
  Sex: Female

DRUGS (32)
  1. ADCICRA [Concomitant]
  2. CRANBERRY. [Concomitant]
     Active Substance: CRANBERRY
  3. DEEP SEA [Concomitant]
  4. PAROXETINE. [Concomitant]
     Active Substance: PAROXETINE
  5. POTASSIUM [Concomitant]
     Active Substance: POTASSIUM
  6. SF (SODIUM FLUORIDE) [Concomitant]
     Active Substance: SODIUM FLUORIDE
  7. TRIAMCINOLON [Concomitant]
  8. DIVALPROEX [Concomitant]
     Active Substance: DIVALPROEX SODIUM
  9. FISH OIL [Concomitant]
     Active Substance: FISH OIL
  10. MELOXICAM. [Concomitant]
     Active Substance: MELOXICAM
  11. OMEPRAZOLE. [Concomitant]
     Active Substance: OMEPRAZOLE
  12. TROSPIUM [Concomitant]
     Active Substance: TROSPIUM
  13. NEO/POLY/HC [Concomitant]
     Active Substance: HYDROCORTISONE\NEOMYCIN\POLYMYXIN B SULFATE
  14. VITAMIN B12 [Concomitant]
     Active Substance: CYANOCOBALAMIN
  15. GABAPENTIN. [Concomitant]
     Active Substance: GABAPENTIN
  16. VENTOLIN [Concomitant]
     Active Substance: ALBUTEROL SULFATE
  17. ASPIRIN. [Concomitant]
     Active Substance: ASPIRIN
  18. BUPROPION. [Concomitant]
     Active Substance: BUPROPION
  19. CETIRIZINE [Concomitant]
     Active Substance: CETIRIZINE HYDROCHLORIDE
  20. RISPERIDONE. [Concomitant]
     Active Substance: RISPERIDONE
  21. ROBITUSSIN (GUAIFENESIN) [Concomitant]
     Active Substance: GUAIFENESIN
  22. AMBRISENTAN 10MG [Suspect]
     Active Substance: AMBRISENTAN
     Indication: PULMONARY ARTERIAL HYPERTENSION
     Route: 048
     Dates: start: 20191002
  23. CEPHALEXIN. [Concomitant]
     Active Substance: CEPHALEXIN
  24. COLACE CLEAR [Concomitant]
     Active Substance: DOCUSATE SODIUM
  25. MILK OF MAGN [Concomitant]
  26. VITAMIN D3 [Concomitant]
     Active Substance: CHOLECALCIFEROL
  27. LEVOTHYROXIN [Concomitant]
     Active Substance: LEVOTHYROXINE
  28. SIMVASTATIN. [Concomitant]
     Active Substance: SIMVASTATIN
  29. FUROSEMIDE. [Concomitant]
     Active Substance: FUROSEMIDE
  30. MAPAP [Concomitant]
     Active Substance: ACETAMINOPHEN
  31. QVAR [Concomitant]
     Active Substance: BECLOMETHASONE DIPROPIONATE
  32. VITAMIN C [Concomitant]
     Active Substance: ASCORBIC ACID

REACTIONS (1)
  - Ill-defined disorder [None]
